FAERS Safety Report 8184392-6 (Version None)
Quarter: 2012Q1

REPORT INFORMATION
  Report Type: 
  Country: None (occurrence: None)
  Receive Date: 20120305
  Receipt Date: 20120228
  Transmission Date: 20120608
  Serious: Yes (Hospitalization)
  Sender: FDA-Public Use
  Company Number: FR-BAXTER-2012BH006035

PATIENT
  Age: 70 Year
  Sex: Male

DRUGS (5)
  1. CYCLOPHOSPHAMIDE [Suspect]
     Indication: WEGENER'S GRANULOMATOSIS
     Route: 042
     Dates: start: 19870101, end: 19920101
  2. MABTHERA [Suspect]
     Route: 042
     Dates: start: 20110603, end: 20110603
  3. MABTHERA [Suspect]
     Route: 042
     Dates: start: 20110525, end: 20110525
  4. MABTHERA [Suspect]
     Indication: WEGENER'S GRANULOMATOSIS
     Route: 042
     Dates: start: 20110627, end: 20110627
  5. MABTHERA [Suspect]
     Route: 042
     Dates: start: 20110615, end: 20110615

REACTIONS (1)
  - MALIGNANT NEOPLASM OF AMPULLA OF VATER [None]
